FAERS Safety Report 9286278 (Version 3)
Quarter: 2014Q2

REPORT INFORMATION
  Report Type: Spontaneous
  Country: US (occurrence: US)
  Receive Date: 20130513
  Receipt Date: 20140414
  Transmission Date: 20141212
  Serious: Yes (Other)
  Sender: FDA-Public Use
  Company Number: US-009507513-1305USA006100

PATIENT
  Sex: Male
  Weight: 87.53 kg

DRUGS (7)
  1. PROPECIA [Suspect]
     Indication: ALOPECIA
     Dosage: 1 MG, QD
     Route: 048
     Dates: start: 20020226, end: 20110211
  2. PROTONIX [Concomitant]
     Indication: GASTROOESOPHAGEAL REFLUX DISEASE
     Dosage: 40 MG, UNK
     Dates: start: 2000
  3. PROTONIX [Concomitant]
     Dosage: 80 MG, UNK
  4. NIOXIN HAIR RECHARGING COMPLEX TABLETS [Concomitant]
     Indication: ALOPECIA
  5. MINOXIDIL [Concomitant]
     Indication: ALOPECIA
  6. ROGAINE [Concomitant]
     Indication: ALOPECIA
  7. DEXILANT [Concomitant]
     Indication: GASTROOESOPHAGEAL REFLUX DISEASE

REACTIONS (38)
  - Mammoplasty [Unknown]
  - Blood testosterone decreased [Unknown]
  - Male sexual dysfunction [Not Recovered/Not Resolved]
  - Psychosexual disorder [Unknown]
  - Skin lesion [Unknown]
  - Skin disorder [Unknown]
  - Skin lesion excision [Unknown]
  - Melanosis [Unknown]
  - Dermal cyst [Unknown]
  - Haemangioma [Unknown]
  - Acne [Unknown]
  - Acrochordon [Unknown]
  - Bronchitis [Unknown]
  - Dysphonia [Unknown]
  - Aspiration [Unknown]
  - Folliculitis [Unknown]
  - Abdominal pain [Unknown]
  - Nausea [Unknown]
  - Capillaritis [Unknown]
  - Benign neoplasm of scrotum [Unknown]
  - Arthropod bite [Unknown]
  - Tenosynovitis [Unknown]
  - Pain in extremity [Unknown]
  - Nasopharyngitis [Unknown]
  - Fat tissue increased [Unknown]
  - Liposuction [Unknown]
  - Osteoarthritis [Unknown]
  - Sensory disturbance [Unknown]
  - Hypoaesthesia [Unknown]
  - Nasal polyps [Unknown]
  - Vocal cord thickening [Unknown]
  - Post-traumatic stress disorder [Unknown]
  - Depression [Unknown]
  - Gynaecomastia [Unknown]
  - Erectile dysfunction [Not Recovered/Not Resolved]
  - Libido decreased [Unknown]
  - Rash papular [Unknown]
  - Pruritus [Unknown]
